FAERS Safety Report 19282126 (Version 6)
Quarter: 2021Q3

REPORT INFORMATION
  Report Type: Report from Study
  Country: US (occurrence: US)
  Receive Date: 20210520
  Receipt Date: 20210715
  Transmission Date: 20211014
  Serious: Yes (Death, Disabling, Other)
  Sender: FDA-Public Use
  Company Number: US-GLAXOSMITHKLINE-US2020GSK173098

PATIENT
  Age: 60 Year
  Sex: Male
  Weight: 55.2 kg

DRUGS (26)
  1. ROBINUL [Concomitant]
     Active Substance: GLYCOPYRROLATE
     Dosage: 0.2 MG Q4H PRN
     Route: 058
  2. LUBRIFRESH PM [Concomitant]
     Dosage: PRN
     Route: 047
  3. MORPHINE [Concomitant]
     Active Substance: MORPHINE
     Dosage: 100 MG N NACL 0.9% 1 ML/HR
     Route: 042
  4. DEXAMETHASONE. [Concomitant]
     Active Substance: DEXAMETHASONE
  5. FLUDARABINE INJECTION [Concomitant]
     Active Substance: FLUDARABINE PHOSPHATE
  6. BENDAMUSTINE [Concomitant]
     Active Substance: BENDAMUSTINE
     Dosage: UNK
     Dates: start: 202003
  7. DARATUMUMAB [Concomitant]
     Active Substance: DARATUMUMAB
  8. VELCADE [Concomitant]
     Active Substance: BORTEZOMIB
     Dosage: UNK
     Dates: start: 202003
  9. CYCLOPHOSPHAMIDE. [Concomitant]
     Active Substance: CYCLOPHOSPHAMIDE
     Dosage: 300 MG/M2, 3 DAYS
  10. ATIVAN [Concomitant]
     Active Substance: LORAZEPAM
     Dosage: 1 MG Q4H PRN
     Route: 042
  11. MORPHINE [Concomitant]
     Active Substance: MORPHINE
     Dosage: 2 MG Q1H PRN
     Route: 042
  12. T CELL INFUSION [Concomitant]
     Dosage: 6 X10X6E
  13. BELANTAMAB MAFODOTIN. [Suspect]
     Active Substance: BELANTAMAB MAFODOTIN
     Indication: PLASMA CELL MYELOMA
     Dosage: 2.5 MG/KG, CYC (ONCE IN 3 WEEKS)
     Route: 042
     Dates: start: 20200617, end: 20200617
  14. MOM (MAGNESIUM HYDROXIDE) [Concomitant]
     Dosage: 30 ML, QD (PRN)
     Route: 048
  15. HALDOL [Concomitant]
     Active Substance: HALOPERIDOL
     Dosage: 1 MG, QID PRN
     Route: 058
  16. HALDOL [Concomitant]
     Active Substance: HALOPERIDOL
     Dosage: 1 MG, QID PRN
     Route: 042
  17. VELCADE [Concomitant]
     Active Substance: BORTEZOMIB
     Dosage: UNK
  18. IXAZOMIB [Concomitant]
     Active Substance: IXAZOMIB
  19. REVLIMID [Concomitant]
     Active Substance: LENALIDOMIDE
  20. COLACE [Concomitant]
     Active Substance: DOCUSATE SODIUM
     Dosage: 100 MG, BID (PRN)
     Route: 048
  21. TYLENOL [Concomitant]
     Active Substance: ACETAMINOPHEN
     Dosage: 650 MG, Q6H(PRN)
     Route: 048
  22. ROBINUL [Concomitant]
     Active Substance: GLYCOPYRROLATE
     Dosage: 0.2 MG Q4H PRN
     Route: 042
  23. CARFILZOMIB [Concomitant]
     Active Substance: CARFILZOMIB
  24. TYLENOL [Concomitant]
     Active Substance: ACETAMINOPHEN
     Dosage: 650 MG, QID (PRN)
     Route: 054
  25. MELPHALAN. [Concomitant]
     Active Substance: MELPHALAN
     Dosage: 200
  26. BORTEZOMIB. [Concomitant]
     Active Substance: BORTEZOMIB

REACTIONS (4)
  - Plasma cell myeloma [Fatal]
  - Optic neuritis [Recovering/Resolving]
  - Vision blurred [Not Recovered/Not Resolved]
  - Corneal epithelium defect [Not Recovered/Not Resolved]

NARRATIVE: CASE EVENT DATE: 20200702
